FAERS Safety Report 8952951 (Version 1)
Quarter: 2012Q4

REPORT INFORMATION
  Report Type: 
  Country: CA (occurrence: CA)
  Receive Date: 20121203
  Receipt Date: 20121203
  Transmission Date: 20130627
  Serious: Yes (Other)
  Sender: FDA-Public Use
  Company Number: CA-AMGEN-CANSP2012076462

PATIENT
  Age: 79 Year
  Sex: Female
  Weight: 29.93 kg

DRUGS (5)
  1. PROLIA [Suspect]
     Indication: OSTEOPOROSIS
     Dosage: UNK
     Dates: start: 20110218, end: 20120227
  2. MAVIK [Concomitant]
  3. CALCIUM [Concomitant]
  4. VITAMIN D                          /00318501/ [Concomitant]
  5. LUMIGAN [Concomitant]

REACTIONS (2)
  - Osteonecrosis of jaw [Not Recovered/Not Resolved]
  - Tooth extraction [Unknown]
